FAERS Safety Report 24045672 (Version 2)
Quarter: 2024Q3

REPORT INFORMATION
  Report Type: Spontaneous
  Country: US (occurrence: US)
  Receive Date: 20240703
  Receipt Date: 20240809
  Transmission Date: 20241016
  Serious: Yes (Hospitalization)
  Sender: KARYOPHARM THERAPEUTICS
  Company Number: US-KARYOPHARM-2024KPT001177

PATIENT

DRUGS (17)
  1. XPOVIO [Suspect]
     Active Substance: SELINEXOR
     Indication: Plasma cell myeloma
     Dosage: 100 MG, WEEKLY
     Route: 048
     Dates: start: 20240606, end: 202406
  2. XPOVIO [Suspect]
     Active Substance: SELINEXOR
     Dosage: 60 MG, WEEKLY
     Route: 048
     Dates: start: 202406
  3. ZYPREXA [Concomitant]
     Active Substance: OLANZAPINE
  4. DEXAMETHASONE [Concomitant]
     Active Substance: DEXAMETHASONE
  5. DARZALEX [Concomitant]
     Active Substance: DARATUMUMAB
  6. ASPIRIN [Concomitant]
     Active Substance: ASPIRIN
  7. HUMALOG [Concomitant]
     Active Substance: INSULIN LISPRO
  8. ZOFRAN [Concomitant]
     Active Substance: ONDANSETRON HYDROCHLORIDE
  9. NORCO [Concomitant]
     Active Substance: ACETAMINOPHEN\HYDROCODONE BITARTRATE
  10. LISINOPRIL [Concomitant]
     Active Substance: LISINOPRIL
  11. PIOGLITAZONE HYDROCHLORIDE [Concomitant]
     Active Substance: PIOGLITAZONE HYDROCHLORIDE
  12. SIMVASTATIN [Concomitant]
     Active Substance: SIMVASTATIN
  13. METFORMIN HYDROCHLORIDE [Concomitant]
     Active Substance: METFORMIN HYDROCHLORIDE
  14. CARVEDILOL [Concomitant]
     Active Substance: CARVEDILOL
  15. GLIPIZIDE XL [Concomitant]
     Active Substance: GLIPIZIDE
  16. LASIX [Concomitant]
     Active Substance: FUROSEMIDE
  17. ALLOPURINOL [Concomitant]
     Active Substance: ALLOPURINOL

REACTIONS (8)
  - Palpitations [Unknown]
  - Rotator cuff syndrome [Unknown]
  - Balance disorder [Unknown]
  - Blood potassium increased [Unknown]
  - Somnolence [Unknown]
  - Asthenia [Recovering/Resolving]
  - Fatigue [Unknown]
  - Confusional state [Unknown]

NARRATIVE: CASE EVENT DATE: 20240101
